FAERS Safety Report 8445188-0 (Version None)
Quarter: 2012Q2

REPORT INFORMATION
  Report Type: 
  Country: None (occurrence: None)
  Receive Date: 20120618
  Receipt Date: 20120608
  Transmission Date: 20120825
  Serious: Yes (Other)
  Sender: FDA-Public Use
  Company Number: US-ASTRAZENECA-2011SE09108

PATIENT
  Age: 49 Year
  Sex: Male

DRUGS (4)
  1. SEROQUEL [Suspect]
     Route: 048
  2. SEROQUEL [Suspect]
     Route: 048
  3. SEROQUEL [Suspect]
     Dosage: 200 MG AND 150 MG
     Route: 048
  4. SEROQUEL [Suspect]
     Indication: BIPOLAR DISORDER
     Route: 048

REACTIONS (12)
  - BIPOLAR DISORDER [None]
  - CONFUSIONAL STATE [None]
  - DISTURBANCE IN ATTENTION [None]
  - DEPRESSION [None]
  - MANIA [None]
  - INSOMNIA [None]
  - DRUG DOSE OMISSION [None]
  - FLASHBACK [None]
  - SUICIDAL IDEATION [None]
  - DIZZINESS [None]
  - NERVOUS SYSTEM DISORDER [None]
  - FEELING ABNORMAL [None]
